FAERS Safety Report 9019908 (Version 1)
Quarter: 2013Q1

REPORT INFORMATION
  Report Type: Spontaneous
  Country: CA (occurrence: CA)
  Receive Date: 20130118
  Receipt Date: 20130118
  Transmission Date: 20140127
  Serious: Yes (Other)
  Sender: FDA-Public Use
  Company Number: CA-PFIZER INC-2013020469

PATIENT
  Age: 67 Year
  Sex: Female

DRUGS (5)
  1. AROMASIN [Suspect]
     Dosage: 25 MG, 1X/DAY
     Dates: start: 201108
  2. ELMIRON [Concomitant]
     Dosage: UNK
  3. NAPROXEN [Concomitant]
     Dosage: UNK
  4. RIVOTRIL [Concomitant]
     Dosage: UNK
  5. IMITREX [Concomitant]
     Dosage: UNK

REACTIONS (2)
  - Cystitis interstitial [Not Recovered/Not Resolved]
  - Condition aggravated [Not Recovered/Not Resolved]
